FAERS Safety Report 12338878 (Version 2)
Quarter: 2016Q2

REPORT INFORMATION
  Report Type: Report from Study
  Country: CO (occurrence: CO)
  Receive Date: 20160505
  Receipt Date: 20160526
  Transmission Date: 20160815
  Serious: Yes (Other)
  Sender: FDA-Public Use
  Company Number: CO-ABBVIE-16K-036-1620321-00

PATIENT
  Age: 68 Year
  Sex: Female
  Weight: 47 kg

DRUGS (2)
  1. METHOTREXATE [Concomitant]
     Active Substance: METHOTREXATE
     Indication: PRODUCT USED FOR UNKNOWN INDICATION
  2. HUMIRA [Suspect]
     Active Substance: ADALIMUMAB
     Indication: PSORIASIS
     Route: 058
     Dates: start: 20120613, end: 20160414

REACTIONS (4)
  - Influenza [Recovering/Resolving]
  - Tooth extraction [Recovering/Resolving]
  - Incision site pain [Recovered/Resolved]
  - Incision site inflammation [Recovered/Resolved]

NARRATIVE: CASE EVENT DATE: 2016
